FAERS Safety Report 5373429-5 (Version None)
Quarter: 2007Q2

REPORT INFORMATION
  Report Type: 
  Country: None (occurrence: None)
  Receive Date: 20070626
  Receipt Date: 20070626
  Transmission Date: 20071010
  Serious: Yes (Other)
  Sender: FDA-Public Use
  Company Number: None

PATIENT
  Sex: Female
  Weight: 71.6683 kg

DRUGS (6)
  1. SINGULAIR [Suspect]
     Indication: PROPHYLAXIS
     Dates: start: 20050901, end: 20070516
  2. SINGULAIR [Suspect]
     Indication: SINUSITIS FUNGAL
     Dates: start: 20050901, end: 20070516
  3. PULMICORT RESPULES [Concomitant]
  4. AMBIEN [Concomitant]
  5. ASTELIN [Concomitant]
  6. NASONEX [Concomitant]

REACTIONS (2)
  - LUNG INFILTRATION [None]
  - RASH [None]
